FAERS Safety Report 9300366 (Version 1)
Quarter: 2012Q4

REPORT INFORMATION
  Report Type: Spontaneous
  Country: US (occurrence: None)
  Receive Date: 20121109
  Receipt Date: 20121109
  Transmission Date: 20130627
  Serious: Yes (Death)
  Sender: FDA-Public Use
  Company Number: 2011S1000806

PATIENT
  Sex: Male

DRUGS (3)
  1. CUBICIN [Suspect]
     Indication: BACTEREMIA
  2. ALL OTHER THERAPEUTIC PRODUCTS [Suspect]
  3. VANCOMYCIN [Concomitant]

REACTIONS (2)
  - Renal failure [None]
  - Antimicrobial susceptibility test resistant [None]
